FAERS Safety Report 5813478-3 (Version None)
Quarter: 2008Q3

REPORT INFORMATION
  Report Type: 
  Country: None (occurrence: None)
  Receive Date: 20080716
  Receipt Date: 20080716
  Transmission Date: 20090109
  Serious: Yes (Hospitalization)
  Sender: FDA-Public Use
  Company Number: None

PATIENT
  Age: 63 Year
  Sex: Male
  Weight: 73.6 kg

DRUGS (2)
  1. PEMETREXED [Suspect]
     Indication: MESOTHELIOMA
     Dosage: 930 MG ONCE IV
     Route: 042
     Dates: start: 20080415, end: 20080415
  2. CISPLATIN [Suspect]
     Indication: MESOTHELIOMA
     Dosage: 140 MG ONCE IV
     Route: 042
     Dates: start: 20080415, end: 20080415

REACTIONS (5)
  - ASTHENIA [None]
  - HAEMATEMESIS [None]
  - NAUSEA [None]
  - NO THERAPEUTIC RESPONSE [None]
  - OESOPHAGITIS [None]
